FAERS Safety Report 8983714 (Version 1)
Quarter: 2012Q4

REPORT INFORMATION
  Report Type: 
  Country: DE (occurrence: DE)
  Receive Date: 20121224
  Receipt Date: 20121224
  Transmission Date: 20130627
  Serious: Yes (Other)
  Sender: FDA-Public Use
  Company Number: DE-TEVA-375851GER

PATIENT
  Age: 0 Year
  Sex: Male

DRUGS (2)
  1. RISPERIDONE [Suspect]
     Route: 064
  2. FOLSAEURE [Concomitant]
     Route: 064

REACTIONS (4)
  - Neonatal respiratory distress syndrome [Recovered/Resolved]
  - Feeding disorder neonatal [Recovered/Resolved]
  - Foetal growth restriction [Unknown]
  - Maternal drugs affecting foetus [None]
